FAERS Safety Report 8170545-X (Version None)
Quarter: 2012Q1

REPORT INFORMATION
  Report Type: 
  Country: None (occurrence: None)
  Receive Date: 20120104
  Receipt Date: 20111031
  Transmission Date: 20120608
  Serious: No
  Sender: FDA-Public Use
  Company Number: 2011HGS-002572

PATIENT
  Age: 62 Year
  Sex: Female
  Weight: 70.3075 kg

DRUGS (9)
  1. CALCIUM CARBONATE [Concomitant]
  2. ASPIRIN [Concomitant]
  3. RELPAX [Concomitant]
  4. PLAQUENIL (YDROXYCHLOROQUINE SULFATE) [Concomitant]
  5. BENLYSTA [Suspect]
     Indication: SYSTEMIC LUPUS ERYTHEMATOSUS
     Dosage: 1 IN 1 M, INTRAVENOUS DRIP
     Route: 041
     Dates: start: 20110606
  6. NORVASC [Concomitant]
  7. LIPITOR [Concomitant]
  8. PREDNISONE TAB [Concomitant]
  9. ACTIVELLA (OESTRANORM) ESTRADIOL, NORETHISTERONE) [Concomitant]

REACTIONS (1)
  - NAUSEA [None]
